FAERS Safety Report 4820240-7 (Version None)
Quarter: 2005Q4

REPORT INFORMATION
  Report Type: 
  Country: None (occurrence: None)
  Receive Date: 20051011
  Receipt Date: 20050308
  Transmission Date: 20060501
  Serious: Yes (Hospitalization)
  Sender: FDA-Public Use
  Company Number: US-JNJFOC-20050100684

PATIENT
  Age: 77 Year
  Sex: Male

DRUGS (1)
  1. RETEVASE [Suspect]
     Indication: DRUG USE FOR UNKNOWN INDICATION
     Dosage: INTRAVENOUS
     Route: 042
     Dates: start: 20041231, end: 20041231

REACTIONS (1)
  - HAEMORRHAGE [None]
